FAERS Safety Report 5924057-1 (Version None)
Quarter: 2008Q4

REPORT INFORMATION
  Report Type: 
  Country: None (occurrence: None)
  Receive Date: 20081020
  Receipt Date: 20081015
  Transmission Date: 20090506
  Serious: Yes (Life-Threatening)
  Sender: FDA-Public Use
  Company Number: JP-BAYER-200710465BYL

PATIENT
  Age: 63 Year
  Sex: Male
  Weight: 50 kg

DRUGS (6)
  1. ADALAT [Suspect]
     Indication: HYPERTENSION
     Dosage: TOTAL DAILY DOSE: 40 MG  UNIT DOSE: 40 MG
     Route: 048
     Dates: start: 20070123, end: 20070602
  2. HERBESSER R [Suspect]
     Indication: HYPERTENSION
     Dosage: TOTAL DAILY DOSE: 100 MG  UNIT DOSE: 100 MG
     Route: 048
     Dates: start: 20070515, end: 20070602
  3. ARTIST [Suspect]
     Dosage: TOTAL DAILY DOSE: 10 MG  UNIT DOSE: 10 MG
     Route: 048
     Dates: end: 20070602
  4. WARFARIN SODIUM [Concomitant]
     Dosage: TOTAL DAILY DOSE: 2.5 MG  UNIT DOSE: 1 MG
     Route: 048
     Dates: end: 20070602
  5. BLOPRESS [Concomitant]
     Dosage: TOTAL DAILY DOSE: 8 MG  UNIT DOSE: 8 MG
     Route: 048
     Dates: end: 20070602
  6. NORMONAL [Concomitant]
     Dosage: TOTAL DAILY DOSE: 12.5 MG  UNIT DOSE: 25 MG
     Route: 048
     Dates: end: 20070602

REACTIONS (2)
  - ATRIOVENTRICULAR BLOCK [None]
  - SHOCK [None]
